FAERS Safety Report 7031825 (Version 1)
Quarter: 2020Q3

REPORT INFORMATION
  Report Type: Report from Study
  Country: US (occurrence: US)
  Receive Date: 20090624
  Receipt Date: 20090624
  Transmission Date: 20201104
  Serious: Yes (Other)
  Sender: FDA-Public Use
  Company Number: US-ROCHE-638822

PATIENT
  Age: 78 Year
  Sex: Female

DRUGS (2)
  1. METOPROLOL. [Concomitant]
     Active Substance: METOPROLOL
  2. IBANDRONIC ACID. [Suspect]
     Active Substance: IBANDRONIC ACID
     Indication: OSTEOPOROSIS
     Route: 048
     Dates: start: 200808, end: 200901

REACTIONS (2)
  - Gastritis [Unknown]
  - Oesophageal mass [Unknown]

NARRATIVE: CASE EVENT DATE: 20081101
